FAERS Safety Report 4782418-0 (Version None)
Quarter: 2005Q3

REPORT INFORMATION
  Report Type: 
  Country: None (occurrence: None)
  Receive Date: 20050929
  Receipt Date: 20040916
  Transmission Date: 20060218
  Serious: No
  Sender: FDA-Public Use
  Company Number: 383406

PATIENT
  Age: 85 Year
  Sex: Female

DRUGS (2)
  1. COREG [Suspect]
     Dosage: 3.125MG TWICE PER DAY
     Route: 048
     Dates: start: 20040914
  2. MAXZIDE [Concomitant]

REACTIONS (3)
  - ABDOMINAL PAIN UPPER [None]
  - ERUCTATION [None]
  - NAUSEA [None]
